FAERS Safety Report 8067569-X (Version None)
Quarter: 2012Q1

REPORT INFORMATION
  Report Type: 
  Country: None (occurrence: None)
  Receive Date: 20120124
  Receipt Date: 20120120
  Transmission Date: 20120608
  Serious: No
  Sender: FDA-Public Use
  Company Number: US-BAYER-2012-007474

PATIENT
  Age: 88 Year
  Sex: Female
  Weight: 72 kg

DRUGS (7)
  1. VITAMIN D [Concomitant]
  2. ALEVE (CAPLET) [Concomitant]
     Dosage: 2 U, QD
     Route: 048
     Dates: start: 20111101
  3. ALEVE (CAPLET) [Suspect]
     Indication: TENDONITIS
     Dosage: 2 U, QD
     Route: 048
     Dates: start: 20111201
  4. CALCIUM [Concomitant]
  5. MULTI-VITAMINS [Concomitant]
  6. OMEPRAZOLE [Concomitant]
  7. QVAR 40 [Concomitant]

REACTIONS (2)
  - EPISTAXIS [None]
  - NO ADVERSE EVENT [None]
